FAERS Safety Report 9098824 (Version 1)
Quarter: 2013Q1

REPORT INFORMATION
  Report Type: Spontaneous
  Country: US (occurrence: US)
  Receive Date: 20130213
  Receipt Date: 20130213
  Transmission Date: 20140127
  Serious: Yes (Death)
  Sender: FDA-Public Use
  Company Number: US-UCBSA-075344

PATIENT
  Age: 28 Year
  Sex: Male

DRUGS (5)
  1. ALPRAZOLAM [Suspect]
  2. AMPHETAMINE [Suspect]
  3. DOXEPIN [Suspect]
  4. TRAMADOL [Suspect]
  5. ETHANOL [Suspect]

REACTIONS (1)
  - Accidental poisoning [Fatal]
